FAERS Safety Report 6235722-3 (Version None)
Quarter: 2009Q2

REPORT INFORMATION
  Report Type: 
  Country: None (occurrence: None)
  Receive Date: 20090619
  Receipt Date: 20070522
  Transmission Date: 20091009
  Serious: Yes (Hospitalization, Other)
  Sender: FDA-Public Use
  Company Number: US-ASTRAZENECA-2006UW23940

PATIENT
  Age: 49 Year
  Sex: Female
  Weight: 63.5 kg

DRUGS (10)
  1. SEROQUEL [Suspect]
     Indication: BIPOLAR DISORDER
     Dosage: 25 MG-300 MG, EVERY NIGHT
     Route: 048
     Dates: start: 19990129
  2. SEROQUEL [Suspect]
     Indication: DEPRESSION
     Dosage: 25 MG-300 MG, EVERY NIGHT
     Route: 048
     Dates: start: 19990129
  3. SEROQUEL [Suspect]
     Indication: SLEEP DISORDER
     Dosage: 25 MG-300 MG, EVERY NIGHT
     Route: 048
     Dates: start: 19990129
  4. ZYPREXA [Suspect]
     Route: 048
     Dates: start: 20010801
  5. TRILAFON [Concomitant]
  6. PAXIL [Concomitant]
  7. REMERON [Concomitant]
     Dates: start: 19990201
  8. SERZONE [Concomitant]
     Dates: start: 19990201
  9. ACIPHEX [Concomitant]
  10. NEURONTIN [Concomitant]
     Route: 048
     Dates: start: 20000314

REACTIONS (8)
  - ACUTE RESPIRATORY DISTRESS SYNDROME [None]
  - ACUTE RESPIRATORY FAILURE [None]
  - DIABETES MELLITUS [None]
  - DIABETES MELLITUS INADEQUATE CONTROL [None]
  - HYPERPROLACTINAEMIA [None]
  - PANCREATITIS [None]
  - PANCREATITIS ACUTE [None]
  - PANCREATITIS RELAPSING [None]
